FAERS Safety Report 12184192 (Version 2)
Quarter: 2017Q1

REPORT INFORMATION
  Report Type: Spontaneous
  Country: US (occurrence: US)
  Receive Date: 20160316
  Receipt Date: 20170104
  Transmission Date: 20170428
  Serious: Yes (Other)
  Sender: FDA-Public Use
  Company Number: US-ARBOR PHARMACEUTICALS, LLC-US-2015ARB000380

PATIENT

DRUGS (1)
  1. EDARBYCLOR [Suspect]
     Active Substance: AZILSARTAN KAMEDOXOMIL\CHLORTHALIDONE
     Indication: HYPERTENSION
     Dosage: 1 DF, QD, [40/12.5 MG]
     Route: 048
     Dates: start: 201506, end: 20150703

REACTIONS (3)
  - Fluid retention [Unknown]
  - Swelling [Unknown]
  - Urine output decreased [Unknown]

NARRATIVE: CASE EVENT DATE: 2015
